FAERS Safety Report 14991918 (Version 2)
Quarter: 2018Q4

REPORT INFORMATION
  Report Type: Spontaneous
  Country: US (occurrence: US)
  Receive Date: 20180608
  Receipt Date: 20181123
  Transmission Date: 20190204
  Serious: No
  Sender: FDA-Public Use
  Company Number: US-009507513-1806USA003190

PATIENT
  Age: 36 Year
  Sex: Female
  Weight: 191.84 kg

DRUGS (1)
  1. NEXPLANON [Suspect]
     Active Substance: ETONOGESTREL
     Indication: CONTRACEPTION
     Dosage: 1 IMPLANT EVERY 3 YEARS, IN RIGHT ARM
     Route: 058
     Dates: start: 20180516, end: 20180525

REACTIONS (3)
  - Medical device site discomfort [Recovered/Resolved]
  - Device kink [Recovered/Resolved]
  - Implant site pain [Recovered/Resolved]

NARRATIVE: CASE EVENT DATE: 201805
